FAERS Safety Report 8276666-5 (Version None)
Quarter: 2012Q2

REPORT INFORMATION
  Report Type: 
  Country: None (occurrence: None)
  Receive Date: 20120406
  Receipt Date: 20120328
  Transmission Date: 20120825
  Serious: Yes (Other)
  Sender: FDA-Public Use
  Company Number: B0792918A

PATIENT
  Sex: 0

DRUGS (3)
  1. MELPHALAN HYDROCHLORIDE [Suspect]
     Indication: LYMPHOMA
     Dosage: 140 G/M2 / INTRAVENOUS
     Route: 042
  2. CYTARABINE [Suspect]
     Indication: LYMPHOMA
     Dosage: 2000 MG/M2/ INTRAVENOUS
     Route: 042
  3. FLUDARABINE PHOSPHATE [Suspect]
     Indication: LYMPHOMA
     Dosage: 30 MG/M2 /INTRAVENOUS
     Route: 042

REACTIONS (1)
  - STOMATITIS [None]
